FAERS Safety Report 10347577 (Version 2)
Quarter: 2014Q3

REPORT INFORMATION
  Report Type: Spontaneous
  Country: FR (occurrence: FR)
  Receive Date: 20140729
  Receipt Date: 20140828
  Transmission Date: 20150326
  Serious: Yes (Life-Threatening, Hospitalization)
  Sender: FDA-Public Use
  Company Number: FR-TEVA-495780ISR

PATIENT
  Age: 18 Year
  Sex: Male

DRUGS (2)
  1. MODIODAL 100 MG [Suspect]
     Active Substance: MODAFINIL
     Indication: NARCOLEPSY
     Dosage: 2 TABLET DAILY;
     Route: 048
     Dates: end: 20140702
  2. MODIODAL 100 MG [Suspect]
     Active Substance: MODAFINIL
     Dosage: 2 TABLET DAILY;
     Route: 048
     Dates: start: 20140601, end: 20140702

REACTIONS (9)
  - Hallucination [Not Recovered/Not Resolved]
  - Delirium [Not Recovered/Not Resolved]
  - Psychotic disorder [Not Recovered/Not Resolved]
  - Persecutory delusion [Not Recovered/Not Resolved]
  - Overdose [Unknown]
  - Disorientation [Not Recovered/Not Resolved]
  - Agitation [Not Recovered/Not Resolved]
  - Anxiety [Not Recovered/Not Resolved]
  - Confusional state [Not Recovered/Not Resolved]

NARRATIVE: CASE EVENT DATE: 20140625
